FAERS Safety Report 25889560 (Version 1)
Quarter: 2025Q4

REPORT INFORMATION
  Report Type: Spontaneous
  Country: AU (occurrence: AU)
  Receive Date: 20251007
  Receipt Date: 20251007
  Transmission Date: 20260118
  Serious: Yes (Other)
  Sender: ALEXION PHARMACEUTICALS
  Company Number: AU-GSK-AU2025APC061869

PATIENT
  Sex: Male

DRUGS (3)
  1. NIRSEVIMAB [Suspect]
     Active Substance: NIRSEVIMAB
     Indication: Product used for unknown indication
     Dosage: UNK
     Route: 065
     Dates: start: 20250428, end: 20250428
  2. ROTARIX [Suspect]
     Active Substance: HUMAN ROTAVIRUS A TYPE G1P(8) STRAIN RIX4414 LIVE ANTIGEN
     Indication: Prophylaxis
     Dosage: 2 DROP
  3. PREVNAR 13 [Suspect]
     Active Substance: STREPTOCOCCUS PNEUMONIAE TYPE 1 CAPSULAR POLYSACCHARIDE DIPHTHERIA CRM197 PROTEIN CONJUGATE ANTIGEN\
     Indication: Prophylaxis
     Dosage: UNK
     Route: 065

REACTIONS (8)
  - Infantile apnoea [Unknown]
  - Respiratory arrest [Unknown]
  - Rash erythematous [Recovered/Resolved]
  - Pallor [Unknown]
  - Skin discolouration [Unknown]
  - Cyanosis [Unknown]
  - Respiration abnormal [Unknown]
  - Rash [Recovered/Resolved]

NARRATIVE: CASE EVENT DATE: 20250428
